FAERS Safety Report 5224861-1 (Version None)
Quarter: 2007Q1

REPORT INFORMATION
  Report Type: 
  Country: None (occurrence: None)
  Receive Date: 20070131
  Receipt Date: 20070118
  Transmission Date: 20070707
  Serious: Yes (Hospitalization)
  Sender: FDA-Public Use
  Company Number: DK-NOVOPROD-260186

PATIENT
  Age: 54 Year
  Sex: Female

DRUGS (1)
  1. VAGIFEM [Suspect]
     Dosage: 2 X WEEKLY
     Dates: start: 20060718, end: 20060928

REACTIONS (1)
  - CEREBRAL THROMBOSIS [None]
